FAERS Safety Report 4748894-4 (Version None)
Quarter: 2005Q3

REPORT INFORMATION
  Report Type: 
  Country: None (occurrence: None)
  Receive Date: 20050819
  Receipt Date: 20050713
  Transmission Date: 20060218
  Serious: Yes (Death, Hospitalization)
  Sender: FDA-Public Use
  Company Number: 2005UW10522

PATIENT
  Age: 7173 Day
  Sex: Male

DRUGS (8)
  1. SEROQUEL [Suspect]
     Route: 048
  2. MINOCYCLINE HCL [Suspect]
  3. TEGRETOL [Concomitant]
  4. RISPERDAL [Concomitant]
  5. LUVOX [Concomitant]
  6. TRILEPTAL [Concomitant]
  7. TENEX [Concomitant]
  8. RITALIN [Concomitant]

REACTIONS (15)
  - AGONAL RHYTHM [None]
  - BLOOD GLUCOSE INCREASED [None]
  - BLOOD PRESSURE INCREASED [None]
  - BRADYCARDIA [None]
  - DISSEMINATED INTRAVASCULAR COAGULATION [None]
  - DRUG SCREEN POSITIVE [None]
  - HEPATIC STEATOSIS [None]
  - HYPERHIDROSIS [None]
  - HYPERTHERMIA [None]
  - HYPOTENSION [None]
  - METABOLIC ACIDOSIS [None]
  - PANCREATITIS ACUTE [None]
  - RESPIRATORY FAILURE [None]
  - SEPTIC SHOCK [None]
  - TACHYCARDIA [None]
